FAERS Safety Report 6528900-7 (Version None)
Quarter: 2009Q4

REPORT INFORMATION
  Report Type: 
  Country: None (occurrence: None)
  Receive Date: 20091223
  Receipt Date: 20091216
  Transmission Date: 20100525
  Serious: Yes (Life-Threatening, Hospitalization, Other)
  Sender: FDA-Public Use
  Company Number: 2009SP032006

PATIENT
  Age: 64 Year
  Sex: Male
  Weight: 98 kg

DRUGS (10)
  1. NOXAFIL [Suspect]
     Indication: RESPIRATORY TRACT INFECTION FUNGAL
     Dosage: 200 MG; QID; PO; 200 MG; QD
     Route: 048
     Dates: start: 20091015, end: 20091018
  2. NOXAFIL [Suspect]
     Indication: RESPIRATORY TRACT INFECTION FUNGAL
     Dosage: 200 MG; QID; PO; 200 MG; QD
     Route: 048
     Dates: start: 20091020, end: 20091020
  3. PANTOZOL        /01263202/ [Concomitant]
  4. FINASTERIDE [Concomitant]
  5. TAMSULOSIN HCL [Concomitant]
  6. METOPROLOL SUCCINATE [Concomitant]
  7. SYMBICORT [Concomitant]
  8. CYTARABINE [Concomitant]
  9. FLUDARABINE PHOSPHATE [Concomitant]
  10. IDARUBICIN HCL [Concomitant]

REACTIONS (16)
  - BLOOD CHOLINESTERASE DECREASED [None]
  - DRUG INTOLERANCE [None]
  - HAEMOGLOBIN DECREASED [None]
  - HEPATIC FUNCTION ABNORMAL [None]
  - METABOLIC ENCEPHALOPATHY [None]
  - MUSCLE DISORDER [None]
  - MUSCULAR WEAKNESS [None]
  - MYOCLONUS [None]
  - NO THERAPEUTIC RESPONSE [None]
  - PLATELET COUNT DECREASED [None]
  - PROTHROMBIN TIME PROLONGED [None]
  - RED BLOOD CELL COUNT DECREASED [None]
  - STATUS EPILEPTICUS [None]
  - TOXIC ENCEPHALOPATHY [None]
  - TRANSAMINASES INCREASED [None]
  - WHITE BLOOD CELL COUNT DECREASED [None]
